FAERS Safety Report 8811719 (Version 1)
Quarter: 2012Q4

REPORT INFORMATION
  Report Type: Spontaneous
  Country: JP (occurrence: None)
  Receive Date: 20120924
  Receipt Date: 20120924
  Transmission Date: 20130627
  Serious: Yes (Other)
  Sender: FDA-Public Use
  Company Number: 2012P1057116

PATIENT
  Age: 67 Year
  Sex: Female

DRUGS (3)
  1. LAMOTRIGINE [Suspect]
     Dosage: 25 mg;q2d
  2. RISPERIDONE [Suspect]
  3. RISPERIDONE [Suspect]

REACTIONS (1)
  - Neuroleptic malignant syndrome [None]
